FAERS Safety Report 21403149 (Version 1)
Quarter: 2022Q3

REPORT INFORMATION
  Report Type: Spontaneous
  Country: US (occurrence: None)
  Receive Date: 20220930
  Receipt Date: 20220930
  Transmission Date: 20221027
  Serious: Yes (unspecified)
  Sender: FDA-Public Use
  Company Number: None

PATIENT
  Age: 42 Year
  Sex: Female
  Weight: 147.4 kg

DRUGS (5)
  1. PACLITAXEL [Suspect]
     Active Substance: PACLITAXEL
     Indication: Breast cancer
     Dosage: OTHER FREQUENCY : ONE TIME INFUSION;?
     Route: 041
     Dates: start: 20220930, end: 20220930
  2. Diphenhydramine 25 mg IVP [Concomitant]
     Dates: start: 20220930, end: 20220930
  3. Diphenhydramine 50 mg IVP [Concomitant]
     Dates: start: 20220930, end: 20220930
  4. EPIPEN [Concomitant]
     Active Substance: EPINEPHRINE
     Dates: start: 20220930, end: 20220930
  5. Dexamethasone 20 mg IVP [Concomitant]
     Dates: start: 20220930, end: 20220930

REACTIONS (6)
  - Chest discomfort [None]
  - Dyspnoea [None]
  - Flushing [None]
  - Throat tightness [None]
  - Abdominal discomfort [None]
  - Presyncope [None]

NARRATIVE: CASE EVENT DATE: 20220930
